FAERS Safety Report 10458717 (Version 2)
Quarter: 2014Q4

REPORT INFORMATION
  Report Type: Spontaneous
  Country: DE (occurrence: DE)
  Receive Date: 20140917
  Receipt Date: 20141120
  Transmission Date: 20150528
  Serious: Yes (Disabling)
  Sender: FDA-Public Use
  Company Number: DE-JNJFOC-20140911454

PATIENT
  Age: 54 Year
  Sex: Female
  Weight: 82 kg

DRUGS (1)
  1. XARELTO [Suspect]
     Active Substance: RIVAROXABAN
     Indication: CEREBRAL THROMBOSIS
     Route: 048
     Dates: end: 201406

REACTIONS (4)
  - Rosacea [Recovered/Resolved]
  - Drug ineffective [Unknown]
  - Liver function test abnormal [Unknown]
  - Weight increased [Recovered/Resolved]

NARRATIVE: CASE EVENT DATE: 201303
